FAERS Safety Report 10023375 (Version 1)
Quarter: 2014Q1

REPORT INFORMATION
  Report Type: Spontaneous
  Country: FR (occurrence: FR)
  Receive Date: 20140320
  Receipt Date: 20140320
  Transmission Date: 20141002
  Serious: Yes (Hospitalization)
  Sender: FDA-Public Use
  Company Number: FR-ROCHE-1363317

PATIENT
  Age: 63 Year
  Sex: Male

DRUGS (13)
  1. MABTHERA [Suspect]
     Indication: LYMPHOMA
     Route: 042
     Dates: start: 20131219
  2. MABTHERA [Suspect]
     Route: 042
     Dates: end: 20140124
  3. MABTHERA [Suspect]
     Route: 042
     Dates: start: 20131227
  4. CLONAZEPAM [Concomitant]
     Route: 065
  5. KEPPRA [Concomitant]
     Route: 065
  6. ATARAX (FRANCE) [Concomitant]
     Route: 065
  7. GABAPENTIN [Concomitant]
     Route: 065
  8. DUPHALAC [Concomitant]
     Route: 065
  9. IMOVANE [Concomitant]
     Route: 065
  10. INEXIUM [Concomitant]
     Route: 065
  11. KARDEGIC [Concomitant]
     Route: 065
  12. BENDAMUSTINE [Concomitant]
     Route: 065
     Dates: end: 20131226
  13. BENDAMUSTINE [Concomitant]
     Route: 065
     Dates: start: 20131227

REACTIONS (1)
  - Epilepsy [Recovered/Resolved]
